FAERS Safety Report 22037859 (Version 1)
Quarter: 2023Q1

REPORT INFORMATION
  Report Type: Spontaneous
  Country: US (occurrence: US)
  Receive Date: 20230227
  Receipt Date: 20230227
  Transmission Date: 20230418
  Serious: No
  Sender: FDA-Public Use
  Company Number: US-PADAGIS-2023PAD00137

PATIENT

DRUGS (3)
  1. IMIQUIMOD [Suspect]
     Active Substance: IMIQUIMOD
     Indication: Extramammary Paget^s disease
     Dosage: UNK
     Route: 065
  2. FLUOROURACIL [Suspect]
     Active Substance: FLUOROURACIL
     Indication: Extramammary Paget^s disease
     Dosage: UNK (MIXTURE OF 1:1)
     Route: 065
  3. CALCIPOTRIENE [Suspect]
     Active Substance: CALCIPOTRIENE
     Indication: Extramammary Paget^s disease
     Dosage: UNK (MIXTURE OF 1:1)
     Route: 065

REACTIONS (2)
  - Skin irritation [Unknown]
  - Product use in unapproved indication [Unknown]
